FAERS Safety Report 14998799 (Version 5)
Quarter: 2020Q3

REPORT INFORMATION
  Report Type: Report from Study
  Country: US (occurrence: US)
  Receive Date: 20180612
  Receipt Date: 20200909
  Transmission Date: 20201102
  Serious: Yes (Hospitalization, Other)
  Sender: FDA-Public Use
  Company Number: US-TAKEDA-2018TUS016883

PATIENT
  Sex: Male

DRUGS (9)
  1. AMLODIPINE BESYLATE. [Concomitant]
     Active Substance: AMLODIPINE BESYLATE
     Dosage: UNK
     Route: 065
  2. LACTULOSE. [Concomitant]
     Active Substance: LACTULOSE
     Dosage: UNK
  3. PONATINIB [Suspect]
     Active Substance: PONATINIB
     Indication: CHRONIC MYELOID LEUKAEMIA
     Dosage: 30 MILLIGRAM, QD
     Route: 048
     Dates: start: 201712
  4. PONATINIB [Suspect]
     Active Substance: PONATINIB
     Dosage: 15 MILLIGRAM
     Route: 048
  5. ASPIRIN 81 [Suspect]
     Active Substance: ASPIRIN
  6. PONATINIB [Suspect]
     Active Substance: PONATINIB
     Dosage: 30 MILLIGRAM, QD
     Route: 048
     Dates: start: 20200626
  7. PONATINIB [Suspect]
     Active Substance: PONATINIB
     Dosage: 45 MILLIGRAM, QD
     Route: 048
  8. PONATINIB [Suspect]
     Active Substance: PONATINIB
     Dosage: 30 MILLIGRAM, QD
     Route: 048
  9. LISINOPRIL. [Concomitant]
     Active Substance: LISINOPRIL
     Dosage: UNK
     Route: 065

REACTIONS (15)
  - Decreased appetite [Unknown]
  - Brain neoplasm [Unknown]
  - Weight decreased [Unknown]
  - Dry eye [Unknown]
  - Dry skin [Unknown]
  - Dyspnoea [Unknown]
  - Hypertension [Unknown]
  - Chest pain [Unknown]
  - Pyrexia [Unknown]
  - Neuropathy peripheral [Not Recovered/Not Resolved]
  - Incorrect dosage administered [Unknown]
  - Chronic myeloid leukaemia [Unknown]
  - Nasopharyngitis [Unknown]
  - Arthralgia [Unknown]
  - Constipation [Unknown]
